FAERS Safety Report 8490149-9 (Version None)
Quarter: 2012Q3

REPORT INFORMATION
  Report Type: 
  Country: None (occurrence: None)
  Receive Date: 20120705
  Receipt Date: 20120626
  Transmission Date: 20120928
  Serious: Yes (Other)
  Sender: FDA-Public Use
  Company Number: FR-JNJFOC-20120605780

PATIENT
  Age: 50 Year
  Sex: Female
  Weight: 85 kg

DRUGS (1)
  1. STELARA [Suspect]
     Indication: PSORIASIS
     Dosage: NEXT ONE WAS PLANNED IN SEP-2012
     Route: 058
     Dates: start: 20110701, end: 20120526

REACTIONS (2)
  - WEIGHT INCREASED [None]
  - ASTHENIA [None]
